FAERS Safety Report 5471602-9 (Version None)
Quarter: 2007Q3

REPORT INFORMATION
  Report Type: 
  Country: None (occurrence: None)
  Receive Date: 20070928
  Receipt Date: 20070202
  Transmission Date: 20080115
  Serious: No
  Sender: FDA-Public Use
  Company Number: US-BRISTOL-MYERS SQUIBB COMPANY-13666839

PATIENT
  Age: 48 Year
  Sex: Female
  Weight: 81 kg

DRUGS (9)
  1. DEFINITY [Suspect]
     Indication: STRESS ECHOCARDIOGRAM
     Dosage: 2CC OF DEFINITY TO START AND ADDITIONAL 2.25CC
  2. ATENOLOL [Concomitant]
  3. BENAZEPRIL HCL [Concomitant]
  4. HEPARIN [Concomitant]
  5. ASPIRIN [Concomitant]
  6. INSULIN [Concomitant]
  7. NITROGLYCERIN [Concomitant]
  8. PHENERGAN HCL [Concomitant]
  9. NEXIUM [Concomitant]

REACTIONS (1)
  - WHEEZING [None]
